FAERS Safety Report 6334080-3 (Version None)
Quarter: 2009Q3

REPORT INFORMATION
  Report Type: 
  Country: None (occurrence: None)
  Receive Date: 20090829
  Receipt Date: 20090710
  Transmission Date: 20100115
  Serious: No
  Sender: FDA-Public Use
  Company Number: US-ABBOTT-09P-163-0585135-00

PATIENT
  Age: 75 Year
  Sex: Female
  Weight: 70.37 kg

DRUGS (3)
  1. SIMCOR [Suspect]
     Indication: BLOOD CHOLESTEROL INCREASED
     Dates: start: 20090622
  2. ASPIRIN [Concomitant]
     Indication: PROPHYLAXIS
  3. ZETIA [Concomitant]
     Indication: BLOOD CHOLESTEROL INCREASED
     Dosage: EVERY OTHER DAY: MONDAY, WEDNESDAY, FRIDAY

REACTIONS (4)
  - ABASIA [None]
  - ARTHRALGIA [None]
  - GAIT DISTURBANCE [None]
  - PAIN IN EXTREMITY [None]
